FAERS Safety Report 16710639 (Version 1)
Quarter: 2019Q4

REPORT INFORMATION
  Report Type: Spontaneous
  Country: US (occurrence: US)
  Receive Date: 20190815
  Receipt Date: 20190815
  Transmission Date: 20200122
  Serious: Yes (Hospitalization)
  Sender: FDA-Public Use
  Company Number: None

PATIENT
  Age: 50 Year
  Sex: Female

DRUGS (13)
  1. PROMETHAZINE TAB 25 MG [Concomitant]
  2. POT CL MICRO TAB 20 MEQ ER [Concomitant]
  3. METRONIDAZOL TAB 500 MG [Concomitant]
  4. LISINOPRIL TAB 40 MG [Concomitant]
  5. AZITHYROMYCIN TAB 250 MG [Concomitant]
  6. PANTOPRAZOLE TAB 40 MG [Concomitant]
  7. CEFUROXIME TAB 500 MG [Concomitant]
  8. ONDANSETRON TAB 8 MG [Concomitant]
  9. DEXAMETHASON SOL 0.5/5 ML [Concomitant]
  10. ROPINIROLE TAB 0.5 MG [Concomitant]
  11. AFINITOR [Suspect]
     Active Substance: EVEROLIMUS
     Indication: ENDOCRINE NEOPLASM MALIGNANT
     Route: 048
     Dates: start: 20190605
  12. SUCRALFATE TAB 1 GM [Concomitant]
  13. VITAMIN D CAP 50000 UNIT [Concomitant]

REACTIONS (1)
  - Staphylococcal infection [None]
